FAERS Safety Report 21104020 (Version 5)
Quarter: 2022Q4

REPORT INFORMATION
  Report Type: Report from Study
  Country: MX (occurrence: MX)
  Receive Date: 20220720
  Receipt Date: 20221118
  Transmission Date: 20230112
  Serious: Yes (Other)
  Sender: FDA-Public Use
  Company Number: MX-NOVARTISPH-NVSC2022MX163985

PATIENT
  Sex: Female
  Weight: 78 kg

DRUGS (12)
  1. EXFORGE [Suspect]
     Active Substance: AMLODIPINE BESYLATE\VALSARTAN
     Indication: Hypertension
     Dosage: 1 DOSAGE FORM, (160/5 MG), QD BY MOUTH
     Route: 048
     Dates: start: 2020
  2. EXFORGE [Suspect]
     Active Substance: AMLODIPINE BESYLATE\VALSARTAN
     Dosage: 1 DOSAGE FORM (5/160 MG), QD VIA MOUTH FROM JAN OR FEB
     Route: 048
     Dates: start: 202110
  3. EXFORGE [Suspect]
     Active Substance: AMLODIPINE BESYLATE\VALSARTAN
     Dosage: 1 DOSAGE FORM OF 5/160 MG, QD VIA MOUTH FROM JAN OR FEB
     Route: 048
     Dates: start: 202201, end: 20220818
  4. EXFORGE [Suspect]
     Active Substance: AMLODIPINE BESYLATE\VALSARTAN
     Dosage: 1 DOSAGE FORM, QD, (160/5MG)
     Route: 048
     Dates: start: 202204
  5. EXFORGE [Suspect]
     Active Substance: AMLODIPINE BESYLATE\VALSARTAN
     Dosage: 0.5 DOSAGE FORM, QD, (160/5MG)
     Route: 048
     Dates: start: 20220819
  6. EXFORGE [Suspect]
     Active Substance: AMLODIPINE BESYLATE\VALSARTAN
     Dosage: 0.5 DOSAGE FORM, QD, (160/5MG) (STOPPED 15 OR 20 DAYS AGO)
     Route: 048
  7. EXFORGE [Suspect]
     Active Substance: AMLODIPINE BESYLATE\VALSARTAN
     Dosage: 1 DOSAGE FORM, QD, (160/5MG) (STARTED 15 OR 20 DAYS AGO)
     Route: 048
  8. EXFORGE [Suspect]
     Active Substance: AMLODIPINE BESYLATE\VALSARTAN
     Dosage: 0.5 DOSAGE FORM
     Route: 048
  9. EXFORGE [Suspect]
     Active Substance: AMLODIPINE BESYLATE\VALSARTAN
     Dosage: 1 DOSAGE FORM, QD (160/ 5 MG)
     Route: 048
  10. ANARA [Concomitant]
     Indication: Constipation
     Dosage: 2 DOSAGE FORM, QD (AT NIGHT, STARTED APPROXIMATELY MANY YEARS AGO)
     Route: 048
  11. BIOYETIN [Concomitant]
     Indication: Anaemia
     Dosage: 1 DOSAGE FORM (1 PRELOADED SYRINGE (4000UI), STARTED APPROXIMATELY A YEAR AGO
     Route: 058
  12. CALCITRIOL [Concomitant]
     Active Substance: CALCITRIOL
     Indication: Renal failure
     Dosage: 1 DOSAGE FORM, QD (STARTED APPROXIMATELY 3 YEARS AGO)
     Route: 048

REACTIONS (13)
  - Blood triglycerides increased [Not Recovered/Not Resolved]
  - Device related infection [Recovered/Resolved]
  - Spinal disorder [Unknown]
  - Breast pain [Not Recovered/Not Resolved]
  - Blood pressure increased [Recovering/Resolving]
  - Pain [Recovering/Resolving]
  - Hypotension [Recovered/Resolved]
  - Blood pressure inadequately controlled [Not Recovered/Not Resolved]
  - Peripheral swelling [Unknown]
  - Vertigo [Not Recovered/Not Resolved]
  - Fatigue [Recovering/Resolving]
  - Weight decreased [Recovered/Resolved]
  - Off label use [Unknown]

NARRATIVE: CASE EVENT DATE: 20210101
